FAERS Safety Report 4758969-1 (Version None)
Quarter: 2005Q3

REPORT INFORMATION
  Report Type: 
  Country: None (occurrence: None)
  Receive Date: 20050826
  Receipt Date: 20050608
  Transmission Date: 20060218
  Serious: Yes (Other)
  Sender: FDA-Public Use
  Company Number: 2005088459

PATIENT
  Sex: Female

DRUGS (2)
  1. CELEBREX [Suspect]
     Indication: ARTHRITIS
  2. BEXTRA [Suspect]
     Indication: ILL-DEFINED DISORDER

REACTIONS (4)
  - DRUG INEFFECTIVE [None]
  - KNEE OPERATION [None]
  - NAUSEA [None]
  - TREMOR [None]
